FAERS Safety Report 9181436 (Version 1)
Quarter: 2013Q1

REPORT INFORMATION
  Report Type: Spontaneous
  Country: KR (occurrence: KR)
  Receive Date: 20130322
  Receipt Date: 20130322
  Transmission Date: 20140127
  Serious: Yes (Other)
  Sender: FDA-Public Use
  Company Number: KR-JNJFOC-20130210910

PATIENT
  Age: 9 Year
  Sex: Male

DRUGS (1)
  1. CONCERTA [Suspect]
     Indication: ATTENTION DEFICIT/HYPERACTIVITY DISORDER
     Route: 048
     Dates: start: 20130204

REACTIONS (6)
  - Tic [Unknown]
  - Cognitive disorder [Unknown]
  - Mood swings [Unknown]
  - Insomnia [Unknown]
  - Nasal obstruction [Unknown]
  - Drug effect decreased [Unknown]
